FAERS Safety Report 10197756 (Version 1)
Quarter: 2014Q2

REPORT INFORMATION
  Report Type: Spontaneous
  Country: US (occurrence: US)
  Receive Date: 20140527
  Receipt Date: 20140527
  Transmission Date: 20141212
  Serious: Yes (Death)
  Sender: FDA-Public Use
  Company Number: US-TEVA-483710USA

PATIENT
  Sex: Female

DRUGS (2)
  1. TREANDA [Suspect]
     Indication: PRODUCT USED FOR UNKNOWN INDICATION
     Dosage: 25 MG, 100 MG -138 MG
     Dates: start: 20140207
  2. TREANDA [Suspect]

REACTIONS (1)
  - Death [Fatal]
